FAERS Safety Report 7526178-9 (Version None)
Quarter: 2011Q2

REPORT INFORMATION
  Report Type: 
  Country: None (occurrence: None)
  Receive Date: 20110606
  Receipt Date: 20110601
  Transmission Date: 20111010
  Serious: Yes (Hospitalization)
  Sender: FDA-Public Use
  Company Number: US-B.I. PHARMACEUTICALS,INC./RIDGEFIELD-2011-BP-14401BP

PATIENT
  Age: 75 Year
  Sex: Male

DRUGS (16)
  1. GLIMIPARIDE [Concomitant]
  2. FISH OIL [Concomitant]
  3. DIGOXIN [Concomitant]
  4. LEXAPRO [Concomitant]
  5. FENTANYL [Concomitant]
  6. ADVAIR DISKUS 100/50 [Concomitant]
  7. PREDNISONE [Concomitant]
  8. VITAMIN B-12 [Concomitant]
  9. FLOMAX [Concomitant]
  10. FERROUS SULFATE TAB [Concomitant]
  11. EXELON [Concomitant]
  12. PRADAXA [Suspect]
     Indication: ATRIAL FIBRILLATION
     Dosage: 300 MG
     Route: 048
     Dates: start: 20101209, end: 20110527
  13. METFORMIN HCL [Concomitant]
     Indication: DIABETES MELLITUS
  14. LIPITOR [Concomitant]
  15. VALIUM [Concomitant]
  16. ZANTAC [Concomitant]
     Indication: GASTRIC ULCER

REACTIONS (1)
  - LOWER GASTROINTESTINAL HAEMORRHAGE [None]
